FAERS Safety Report 11053229 (Version 2)
Quarter: 2015Q2

REPORT INFORMATION
  Report Type: Spontaneous
  Country: US (occurrence: US)
  Receive Date: 20150421
  Receipt Date: 20150430
  Transmission Date: 20150821
  Serious: No
  Sender: FDA-Public Use
  Company Number: US-GLAXOSMITHKLINE-US2015GSK054025

PATIENT
  Sex: Male
  Weight: 80.73 kg

DRUGS (7)
  1. CLARITIN [Concomitant]
     Active Substance: LORATADINE
  2. PREDNISONE. [Concomitant]
     Active Substance: PREDNISONE
  3. TAFINLAR [Suspect]
     Active Substance: DABRAFENIB MESYLATE
     Indication: MALIGNANT MELANOMA
     Dosage: 150 MG, BID
     Route: 048
     Dates: start: 20140313
  4. ASPIRIN. [Concomitant]
     Active Substance: ASPIRIN
  5. MEKINIST [Suspect]
     Active Substance: TRAMETINIB DIMETHYL SULFOXIDE
     Indication: MALIGNANT MELANOMA
     Dosage: 2 MG, QD
     Route: 048
     Dates: start: 20140313
  6. PEPCID [Concomitant]
     Active Substance: FAMOTIDINE
  7. LISINOPRIL. [Concomitant]
     Active Substance: LISINOPRIL

REACTIONS (1)
  - Therapy cessation [Unknown]
